FAERS Safety Report 9387126 (Version 1)
Quarter: 2013Q3

REPORT INFORMATION
  Report Type: Spontaneous
  Country: RU (occurrence: RU)
  Receive Date: 20130708
  Receipt Date: 20130708
  Transmission Date: 20140515
  Serious: Yes (Hospitalization)
  Sender: FDA-Public Use
  Company Number: RU-ROCHE-1242756

PATIENT
  Sex: Female

DRUGS (6)
  1. XELODA [Suspect]
     Indication: BREAST CANCER
     Dosage: 1-14 DAYS
     Route: 048
     Dates: start: 201109, end: 20111015
  2. XELODA [Suspect]
     Route: 048
     Dates: start: 20111015, end: 20111226
  3. XELODA [Suspect]
     Route: 048
     Dates: start: 20111226
  4. TRASTUZUMAB [Suspect]
     Indication: BREAST CANCER
     Route: 065
     Dates: start: 201109
  5. TRASTUZUMAB [Suspect]
     Route: 065
     Dates: start: 20111226
  6. ZOMETA [Concomitant]
     Indication: BREAST CANCER
     Route: 042
     Dates: start: 201109

REACTIONS (1)
  - Metastases to ovary [Not Recovered/Not Resolved]
